FAERS Safety Report 13119902 (Version 1)
Quarter: 2017Q1

REPORT INFORMATION
  Report Type: Spontaneous
  Country: US (occurrence: US)
  Receive Date: 20170117
  Receipt Date: 20170117
  Transmission Date: 20170428
  Serious: Yes (Other)
  Sender: FDA-Public Use
  Company Number: US-STRIDES ARCOLAB LIMITED-2017SP000360

PATIENT

DRUGS (3)
  1. PRAMIPEXOLE DIHYDROCHLORIDE. [Suspect]
     Active Substance: PRAMIPEXOLE DIHYDROCHLORIDE
     Indication: PARKINSON^S DISEASE
     Dosage: 1.5 MG, TID
     Route: 048
  2. PRAMIPEXOLE DIHYDROCHLORIDE. [Suspect]
     Active Substance: PRAMIPEXOLE DIHYDROCHLORIDE
     Dosage: 0.75 MG, TID
  3. PRAMIPEXOLE DIHYDROCHLORIDE. [Suspect]
     Active Substance: PRAMIPEXOLE DIHYDROCHLORIDE
     Dosage: 0.75 MG, TID
     Route: 048

REACTIONS (10)
  - Drug withdrawal syndrome [Unknown]
  - Poor quality sleep [Recovered/Resolved]
  - Communication disorder [Recovered/Resolved]
  - Anxiety [Recovered/Resolved]
  - Amnesia [Recovered/Resolved]
  - Panic attack [Unknown]
  - Feeling abnormal [Recovered/Resolved]
  - Somnolence [Recovered/Resolved]
  - Fatigue [Unknown]
  - Automatism [Recovered/Resolved]
